FAERS Safety Report 4932799-X (Version None)
Quarter: 2006Q1

REPORT INFORMATION
  Report Type: 
  Country: None (occurrence: None)
  Receive Date: 20060302
  Receipt Date: 20060302
  Transmission Date: 20060701
  Serious: No
  Sender: FDA-Public Use
  Company Number: None

PATIENT
  Sex: Male
  Weight: 83.9154 kg

DRUGS (1)
  1. ZONISAMIDE [Suspect]
     Indication: CONVULSION
     Dosage: 100 MG  QPM  PO
     Route: 048
     Dates: start: 20060127, end: 20060129

REACTIONS (4)
  - BALANCE DISORDER [None]
  - DIZZINESS [None]
  - PHARMACEUTICAL PRODUCT COMPLAINT [None]
  - UNEVALUABLE EVENT [None]
